FAERS Safety Report 14899011 (Version 1)
Quarter: 2018Q2

REPORT INFORMATION
  Report Type: Spontaneous
  Country: FR (occurrence: FR)
  Receive Date: 20180516
  Receipt Date: 20180516
  Transmission Date: 20180711
  Serious: Yes (Other)
  Sender: FDA-Public Use
  Company Number: FR-MERCK KGAA-2047844

PATIENT
  Age: 62 Year
  Sex: Female

DRUGS (1)
  1. NOVOTHYROX [Suspect]
     Active Substance: LEVOTHYROXINE SODIUM
     Indication: HYPOTHYROIDISM
     Dates: start: 201704

REACTIONS (31)
  - Burning sensation [None]
  - Muscle spasms [None]
  - Abdominal pain [None]
  - Eye irritation [None]
  - Neck pain [None]
  - Blood potassium increased [Recovered/Resolved]
  - Myalgia [None]
  - Dyspnoea [None]
  - Alopecia [None]
  - Anxiety [None]
  - Insomnia [None]
  - Loss of personal independence in daily activities [None]
  - C-reactive protein increased [Recovering/Resolving]
  - Vitamin D increased [None]
  - Eye swelling [None]
  - Musculoskeletal discomfort [None]
  - High density lipoprotein increased [None]
  - Blood creatine phosphokinase increased [None]
  - Palpitations [None]
  - Vision blurred [None]
  - Eyelid function disorder [None]
  - Blood thyroid stimulating hormone increased [Recovered/Resolved]
  - Irritability [None]
  - Arthralgia [None]
  - Malaise [None]
  - Pelvic discomfort [None]
  - Dyspepsia [None]
  - Pain [None]
  - Gait disturbance [None]
  - Weight increased [None]
  - Dizziness [None]

NARRATIVE: CASE EVENT DATE: 2017
